FAERS Safety Report 8305560-6 (Version None)
Quarter: 2012Q2

REPORT INFORMATION
  Report Type: 
  Country: None (occurrence: None)
  Receive Date: 20120423
  Receipt Date: 20120417
  Transmission Date: 20120825
  Serious: Yes (Hospitalization, Disabling, Other)
  Sender: FDA-Public Use
  Company Number: US-MERCK-1101USA02946

PATIENT
  Age: 53 Year
  Sex: Female
  Weight: 68 kg

DRUGS (7)
  1. CARBATROL [Concomitant]
     Route: 065
  2. FOSAMAX PLUS D [Suspect]
     Indication: OSTEOPOROSIS
     Route: 048
     Dates: start: 20050103, end: 20090301
  3. VITAMINS (UNSPECIFIED) [Concomitant]
     Route: 065
  4. FOSAMAX [Suspect]
     Indication: OSTEOPOROSIS
     Route: 048
     Dates: start: 20040101, end: 20090101
  5. ALBUTEROL [Concomitant]
     Route: 055
  6. FOSAMAX [Suspect]
     Route: 048
     Dates: start: 20080221, end: 20080227
  7. CALCIUM (UNSPECIFIED) [Concomitant]
     Route: 065

REACTIONS (19)
  - OSTEONECROSIS OF JAW [None]
  - ENDOMETRIAL ATROPHY [None]
  - PYREXIA [None]
  - CONVULSION [None]
  - GINGIVAL ABSCESS [None]
  - ORAL INFECTION [None]
  - BACTERIAL INFECTION [None]
  - BREAST CYST [None]
  - ANXIETY [None]
  - HYDROMETRA [None]
  - DRUG HYPERSENSITIVITY [None]
  - GLUCOSE TOLERANCE IMPAIRED [None]
  - DIZZINESS [None]
  - WEIGHT DECREASED [None]
  - TOOTH DISORDER [None]
  - DENTAL CARIES [None]
  - ABSCESS ORAL [None]
  - JAW DISORDER [None]
  - OSTEOMYELITIS [None]
